FAERS Safety Report 12525927 (Version 1)
Quarter: 2016Q3

REPORT INFORMATION
  Report Type: Report from Study
  Country: JP (occurrence: JP)
  Receive Date: 20160705
  Receipt Date: 20160705
  Transmission Date: 20161109
  Serious: Yes (Death, Life-Threatening)
  Sender: FDA-Public Use
  Company Number: JP-UCBSA-2016020436

PATIENT
  Age: 72 Year
  Sex: Male

DRUGS (3)
  1. SULBACILLIN [Concomitant]
     Active Substance: AMPICILLIN SODIUM\SULBACTAM SODIUM
     Indication: PRODUCT USED FOR UNKNOWN INDICATION
     Dosage: 6 G DAILY
     Route: 042
     Dates: start: 20160210, end: 20160223
  2. LEVETIRACETAM. [Suspect]
     Active Substance: LEVETIRACETAM
     Indication: GENERALISED TONIC-CLONIC SEIZURE
     Dosage: 500 MG, 2X/DAY (BID)
     Route: 041
     Dates: start: 20160210, end: 20160222
  3. FLUMARIN [Concomitant]
     Active Substance: FLOMOXEF SODIUM
     Indication: PRODUCT USED FOR UNKNOWN INDICATION
     Dosage: 2 G DAILY
     Route: 042
     Dates: start: 20160224, end: 20160225

REACTIONS (4)
  - Asphyxia [Fatal]
  - Hypernatraemia [Fatal]
  - Hypoxic-ischaemic encephalopathy [Fatal]
  - Off label use [None]

NARRATIVE: CASE EVENT DATE: 2016
